FAERS Safety Report 24439102 (Version 3)
Quarter: 2025Q1

REPORT INFORMATION
  Report Type: Spontaneous
  Country: IT (occurrence: IT)
  Receive Date: 20241015
  Receipt Date: 20250129
  Transmission Date: 20250408
  Serious: Yes (Hospitalization, Other)
  Sender: NOVARTIS
  Company Number: IT-002147023-NVSC2024IT200414

PATIENT
  Age: 66 Year
  Sex: Male

DRUGS (6)
  1. MIDOSTAURIN [Suspect]
     Active Substance: MIDOSTAURIN
     Indication: Neoplasm
     Dosage: 100 MG, BID
     Route: 065
     Dates: start: 202007
  2. MIDOSTAURIN [Suspect]
     Active Substance: MIDOSTAURIN
     Dosage: 50 MG, BID
     Route: 065
     Dates: start: 202107, end: 202201
  3. MIDOSTAURIN [Suspect]
     Active Substance: MIDOSTAURIN
     Dosage: 150 MG, QD
     Route: 065
     Dates: start: 202301
  4. MIDOSTAURIN [Suspect]
     Active Substance: MIDOSTAURIN
     Route: 065
     Dates: start: 202305
  5. LEVETIRACETAM [Concomitant]
     Active Substance: LEVETIRACETAM
     Indication: Epilepsy
     Route: 065
  6. ONDANSETRON [Concomitant]
     Active Substance: ONDANSETRON
     Indication: Product used for unknown indication
     Route: 065

REACTIONS (14)
  - Haematemesis [Unknown]
  - Melaena [Unknown]
  - Hepatic cirrhosis [Unknown]
  - Anaemia [Unknown]
  - Myeloid leukaemia [Unknown]
  - Malignant neoplasm progression [Unknown]
  - Portal hypertension [Unknown]
  - Nausea [Unknown]
  - Vomiting [Unknown]
  - Rash [Unknown]
  - Gastrointestinal toxicity [Unknown]
  - Diarrhoea [Recovering/Resolving]
  - Hepatomegaly [Unknown]
  - Condition aggravated [Unknown]

NARRATIVE: CASE EVENT DATE: 20230901
